FAERS Safety Report 7282693-7 (Version None)
Quarter: 2011Q1

REPORT INFORMATION
  Report Type: 
  Country: None (occurrence: None)
  Receive Date: 20110209
  Receipt Date: 20101119
  Transmission Date: 20110831
  Serious: No
  Sender: FDA-Public Use
  Company Number: US-TYCO HEALTHCARE/MALLINCKRODT-T201002337

PATIENT
  Sex: Male
  Weight: 90.703 kg

DRUGS (2)
  1. PENNSAID [Suspect]
     Indication: OSTEONECROSIS
     Dosage: 40 GTTS EACH KNEE, QID
     Dates: start: 20101117, end: 20101119
  2. OXYCONTIN [Concomitant]

REACTIONS (1)
  - JOINT SWELLING [None]
